FAERS Safety Report 10210957 (Version 1)
Quarter: 2014Q2

REPORT INFORMATION
  Report Type: Spontaneous
  Country: OM (occurrence: OM)
  Receive Date: 20140602
  Receipt Date: 20140602
  Transmission Date: 20141212
  Serious: Yes (Hospitalization, Other)
  Sender: FDA-Public Use
  Company Number: OM-WATSON-2014-11746

PATIENT
  Age: 66 Year
  Sex: Female

DRUGS (7)
  1. DIGOXIN (UNKNOWN) [Suspect]
     Indication: CARDIAC FAILURE CONGESTIVE
     Dosage: 0.125 MG, DAILY
     Route: 065
  2. FUROSEMIDE (UNKNOWN) [Suspect]
     Indication: CARDIAC FAILURE CONGESTIVE
     Dosage: 40 MG, BID
     Route: 065
  3. SPIRONOLACTONE (UNKNOWN) [Suspect]
     Indication: CARDIAC FAILURE CONGESTIVE
     Dosage: 25 MG, DAILY
     Route: 065
  4. CARVEDILOL (UNKNOWN) [Suspect]
     Indication: CARDIAC FAILURE CONGESTIVE
     Dosage: 6.25 MG, BID
     Route: 065
  5. LISINOPRIL (UNKNOWN) [Suspect]
     Indication: CARDIAC FAILURE CONGESTIVE
     Dosage: 10 MG, DAILY
     Route: 065
  6. METFORMIN (UNKNOWN) [Suspect]
     Indication: PRODUCT USED FOR UNKNOWN INDICATION
     Dosage: UNKNOWN
     Route: 065
  7. CALCIUM [Concomitant]
     Indication: PRODUCT USED FOR UNKNOWN INDICATION
     Dosage: UNKNOWN
     Route: 065

REACTIONS (2)
  - Toxicity to various agents [Recovered/Resolved]
  - Hypomagnesaemia [Recovered/Resolved]
